FAERS Safety Report 9856573 (Version 2)
Quarter: 2014Q1

REPORT INFORMATION
  Report Type: Spontaneous
  Country: US (occurrence: US)
  Receive Date: 20140130
  Receipt Date: 20140130
  Transmission Date: 20141002
  Serious: No
  Sender: FDA-Public Use
  Company Number: US-GILEAD-2013-0071697

PATIENT
  Sex: Male

DRUGS (2)
  1. COMPLERA [Suspect]
     Indication: HIV INFECTION
     Dosage: UNK
     Dates: start: 201202
  2. TRUVADA [Concomitant]
     Indication: HIV INFECTION
     Dosage: UNK
     Dates: end: 201202

REACTIONS (2)
  - Constipation [Unknown]
  - Product quality issue [Unknown]
